FAERS Safety Report 9257629 (Version 2)
Quarter: 2013Q2

REPORT INFORMATION
  Report Type: Spontaneous
  Country: US (occurrence: US)
  Receive Date: 20130426
  Receipt Date: 20130520
  Transmission Date: 20140414
  Serious: Yes (Other)
  Sender: FDA-Public Use
  Company Number: US-PFIZER INC-2013128028

PATIENT
  Age: 69 Year
  Sex: Female
  Weight: 68.03 kg

DRUGS (5)
  1. NARDIL [Suspect]
     Indication: DEPRESSION
     Dosage: 15 MG, THREE TIMES A DAY
     Route: 048
  2. ASPIRIN [Concomitant]
     Dosage: 81 MG, UNK
  3. FISH OIL [Concomitant]
     Dosage: UNK,ONCE A DAY
  4. CALCIUM [Concomitant]
     Dosage: UNK
  5. VITAMIN D3 [Concomitant]
     Dosage: UNK

REACTIONS (5)
  - Aortic aneurysm [Unknown]
  - Hypertension [Unknown]
  - Blood cholesterol increased [Unknown]
  - Weight fluctuation [Unknown]
  - Body height decreased [Unknown]
